FAERS Safety Report 17818870 (Version 1)
Quarter: 2020Q2

REPORT INFORMATION
  Report Type: Spontaneous
  Country: US (occurrence: US)
  Receive Date: 20200522
  Receipt Date: 20200522
  Transmission Date: 20200714
  Serious: Yes (Other)
  Sender: FDA-Public Use
  Company Number: NVSC2020US139680

PATIENT
  Age: 36 Year
  Sex: Female

DRUGS (4)
  1. PREDNISONE. [Concomitant]
     Active Substance: PREDNISONE
     Indication: AUTOIMMUNE ARTHRITIS
     Dosage: 7.5 MG, QD
     Route: 065
  2. HYDROXYCHLOROQUINE [Concomitant]
     Active Substance: HYDROXYCHLOROQUINE
     Indication: PRODUCT USED FOR UNKNOWN INDICATION
     Dosage: 400 MG, QD
     Route: 065
  3. DICLOXACILLIN [Suspect]
     Active Substance: DICLOXACILLIN
     Indication: MASTITIS
     Dosage: 500 MG (3 DOSES FOR 12 HOUR PERIOD)
     Route: 065
  4. PREDNISONE. [Concomitant]
     Active Substance: PREDNISONE
     Dosage: 20 MG, QD
     Route: 065

REACTIONS (5)
  - Product use in unapproved indication [Unknown]
  - Pain in extremity [Unknown]
  - Hypokinesia [Unknown]
  - Systemic lupus erythematosus [Unknown]
  - Arthralgia [Unknown]
